FAERS Safety Report 10241452 (Version 1)
Quarter: 2014Q2

REPORT INFORMATION
  Report Type: Spontaneous
  Country: GB (occurrence: GB)
  Receive Date: 20140617
  Receipt Date: 20140617
  Transmission Date: 20141212
  Serious: Yes (Life-Threatening)
  Sender: FDA-Public Use
  Company Number: GB-WATSON-2014-12611

PATIENT
  Age: 82 Year
  Sex: Female
  Weight: 57 kg

DRUGS (3)
  1. LOSARTAN [Suspect]
     Indication: HYPERTENSION
     Dosage: 50 MG, DAILY
     Route: 048
     Dates: start: 20140509, end: 20140521
  2. VENTOLIN                           /00139501/ [Concomitant]
     Indication: PRODUCT USED FOR UNKNOWN INDICATION
     Dosage: UNK
     Route: 065
  3. VALSARTAN [Concomitant]
     Indication: HYPERTENSION
     Dosage: 80 MG, UNKNOWN
     Route: 065

REACTIONS (4)
  - Swollen tongue [Recovering/Resolving]
  - Oral pain [Recovering/Resolving]
  - Dyspnoea [Recovering/Resolving]
  - Dysgeusia [Recovering/Resolving]
